FAERS Safety Report 12078572 (Version 1)
Quarter: 2016Q1

REPORT INFORMATION
  Report Type: Spontaneous
  Country: IT (occurrence: IT)
  Receive Date: 20160216
  Receipt Date: 20160216
  Transmission Date: 20160526
  Serious: Yes (Other)
  Sender: FDA-Public Use
  Company Number: IT-ROCHE-1711586

PATIENT
  Age: 34 Year

DRUGS (1)
  1. ROCEFIN [Suspect]
     Active Substance: CEFTRIAXONE SODIUM
     Indication: ANTIBIOTIC PROPHYLAXIS
     Dosage: 1G/3.5ML 1 POWDER VIAL + 1 SOLVENT VIAL 3.5 ML
     Route: 030
     Dates: start: 20160109, end: 20160109

REACTIONS (3)
  - Feeling hot [Recovering/Resolving]
  - Erythema [Recovering/Resolving]
  - Presyncope [Recovering/Resolving]

NARRATIVE: CASE EVENT DATE: 20160109
